FAERS Safety Report 12645383 (Version 2)
Quarter: 2017Q1

REPORT INFORMATION
  Report Type: Spontaneous
  Country: US (occurrence: US)
  Receive Date: 20160811
  Receipt Date: 20170224
  Transmission Date: 20170428
  Serious: Yes (Other)
  Sender: FDA-Public Use
  Company Number: US-JAZZ-2016-US-004631

PATIENT
  Age: 48 Year
  Sex: Male

DRUGS (34)
  1. CETIRIZINE HCL [Concomitant]
     Active Substance: CETIRIZINE HYDROCHLORIDE
  2. TRAZODONE [Concomitant]
     Active Substance: TRAZODONE HYDROCHLORIDE
  3. FLONASE [Concomitant]
     Active Substance: FLUTICASONE PROPIONATE
  4. PROCTOFOAM [Concomitant]
     Active Substance: PRAMOXINE HYDROCHLORIDE
  5. FISH OIL [Concomitant]
     Active Substance: FISH OIL
  6. LIDOCAINE HCL [Concomitant]
     Active Substance: LIDOCAINE HYDROCHLORIDE
  7. LOPERAMIDE [Concomitant]
     Active Substance: LOPERAMIDE
  8. HYPROMELLOSE [Concomitant]
     Active Substance: HYPROMELLOSES
  9. MODAFINIL. [Concomitant]
     Active Substance: MODAFINIL
  10. CLINDAMYCIN PHOSPHATE. [Concomitant]
     Active Substance: CLINDAMYCIN PHOSPHATE
  11. ACETAMINOPHEN. [Concomitant]
     Active Substance: ACETAMINOPHEN
  12. PROBIOTIC ACIDOPHILUS [Concomitant]
     Active Substance: LACTOBACILLUS ACIDOPHILUS
  13. HYDROCORTISONE. [Concomitant]
     Active Substance: HYDROCORTISONE
  14. SIMETHICONE (DIMETHICONE) [Concomitant]
     Active Substance: DIMETHICONE
  15. SERTRALINE HCL [Concomitant]
     Active Substance: SERTRALINE HYDROCHLORIDE
  16. MONTELUKAST SODIUM. [Concomitant]
     Active Substance: MONTELUKAST SODIUM
  17. OXYCODONE AND ACETAMINOPHEN [Concomitant]
     Active Substance: ACETAMINOPHEN\OXYCODONE HYDROCHLORIDE
  18. CHLORHEXIDINE [Concomitant]
     Active Substance: CHLORHEXIDINE
  19. AZELASTINE [Concomitant]
     Active Substance: AZELASTINE
  20. CHLORPHENIRAMINE. [Concomitant]
     Active Substance: CHLORPHENIRAMINE
  21. TRETINOIN. [Concomitant]
     Active Substance: TRETINOIN
  22. XYREM [Suspect]
     Active Substance: SODIUM OXYBATE
     Indication: CATAPLEXY
     Dosage: DOSE ADJUSTMENTS
     Route: 048
  23. OMEPRAZOLE. [Concomitant]
     Active Substance: OMEPRAZOLE
  24. TOPIRAMATE. [Concomitant]
     Active Substance: TOPIRAMATE
  25. VITAMIN D [Concomitant]
     Active Substance: CHOLECALCIFEROL
  26. ATROVENT [Concomitant]
     Active Substance: IPRATROPIUM BROMIDE
  27. HYDROQUINONE. [Concomitant]
     Active Substance: HYDROQUINONE
  28. PSYLLIUM HULLS [Concomitant]
  29. VIAGRA [Concomitant]
     Active Substance: SILDENAFIL CITRATE
  30. XYREM [Suspect]
     Active Substance: SODIUM OXYBATE
     Indication: NARCOLEPSY
     Dosage: 2.5 G, BID
     Route: 048
     Dates: start: 201507, end: 201507
  31. XYREM [Suspect]
     Active Substance: SODIUM OXYBATE
     Dosage: 4.5 G, BID
     Route: 048
     Dates: start: 201508
  32. TOPIRAMATE. [Concomitant]
     Active Substance: TOPIRAMATE
  33. MULTIVITAMINS [Concomitant]
     Active Substance: VITAMINS
  34. SIMVASTATIN. [Concomitant]
     Active Substance: SIMVASTATIN

REACTIONS (8)
  - Sinus operation [Unknown]
  - Intervertebral disc protrusion [Not Recovered/Not Resolved]
  - Cluster headache [Not Recovered/Not Resolved]
  - Exostosis [Not Recovered/Not Resolved]
  - Mouth injury [Unknown]
  - Irritable bowel syndrome [Not Recovered/Not Resolved]
  - Condition aggravated [Not Recovered/Not Resolved]
  - Plantar fasciitis [Not Recovered/Not Resolved]

NARRATIVE: CASE EVENT DATE: 201512
